FAERS Safety Report 7917849-0 (Version None)
Quarter: 2011Q4

REPORT INFORMATION
  Report Type: 
  Country: None (occurrence: None)
  Receive Date: 20111116
  Receipt Date: 20111104
  Transmission Date: 20120403
  Serious: Yes (Hospitalization, Other)
  Sender: FDA-Public Use
  Company Number: PHHY2011BR097656

PATIENT
  Sex: Female
  Weight: 57 kg

DRUGS (2)
  1. COLPOTROFIN [Concomitant]
     Indication: HORMONE REPLACEMENT THERAPY
     Route: 067
  2. ESTRADERM [Suspect]
     Dosage: 50 UG, ONE PATCH EVERY 3 DAYS
     Route: 062

REACTIONS (8)
  - OSTEOPOROSIS [None]
  - VOMITING [None]
  - ANAL HAEMORRHAGE [None]
  - ABDOMINAL PAIN [None]
  - PNEUMONIA [None]
  - GASTROOESOPHAGEAL REFLUX DISEASE [None]
  - HIATUS HERNIA [None]
  - NEPHROLITHIASIS [None]
